FAERS Safety Report 6654789-1 (Version None)
Quarter: 2010Q1

REPORT INFORMATION
  Report Type: 
  Country: None (occurrence: None)
  Receive Date: 20100328
  Receipt Date: 20100323
  Transmission Date: 20100710
  Serious: Yes (Death, Life-Threatening, Hospitalization)
  Sender: FDA-Public Use
  Company Number: PL-BRISTOL-MYERS SQUIBB COMPANY-14714976

PATIENT
  Age: 61 Year
  Sex: Female
  Weight: 40 kg

DRUGS (6)
  1. CISPLATIN [Suspect]
     Indication: HEAD AND NECK CANCER
     Dosage: ON DAY 1 EVERY 21 DAYS
     Route: 065
     Dates: start: 20090603
  2. PEMETREXED DISODIUM [Suspect]
     Indication: HEAD AND NECK CANCER
     Route: 065
     Dates: start: 20090603
  3. BLINDED: PLACEBO [Suspect]
     Indication: HEAD AND NECK CANCER
     Dates: start: 20090603
  4. FOLIC ACID [Concomitant]
     Dates: start: 20090525, end: 20090613
  5. VITAMIN B-12 [Concomitant]
     Dates: start: 20090601, end: 20090601
  6. DEXAMETHASONE [Concomitant]
     Dates: end: 20090614

REACTIONS (5)
  - DECREASED APPETITE [None]
  - DEHYDRATION [None]
  - LEUKOPENIA [None]
  - MALIGNANT NEOPLASM PROGRESSION [None]
  - THROMBOCYTOPENIA [None]
